FAERS Safety Report 9238727 (Version 1)
Quarter: 2013Q2

REPORT INFORMATION
  Report Type: Spontaneous
  Country: US (occurrence: None)
  Receive Date: 20130417
  Receipt Date: 20130417
  Transmission Date: 20140414
  Serious: Yes (Life-Threatening, Hospitalization)
  Sender: FDA-Public Use
  Company Number: None

PATIENT
  Age: 89 Year
  Sex: Male
  Weight: 50.35 kg

DRUGS (1)
  1. AZITHROMYCIN [Suspect]
     Indication: BRONCHITIS
     Dosage: 250 MG  DAILY X 5 DAYS  BY MOUTH -047
     Route: 048
     Dates: start: 20130129, end: 20130203

REACTIONS (9)
  - Fatigue [None]
  - Asthenia [None]
  - Decreased appetite [None]
  - Dehydration [None]
  - Nausea [None]
  - Atrial fibrillation [None]
  - Vomiting [None]
  - Autoimmune haemolytic anaemia [None]
  - Clostridium difficile colitis [None]
